FAERS Safety Report 10418004 (Version 1)
Quarter: 2014Q2

REPORT INFORMATION
  Report Type: Spontaneous
  Country: US (occurrence: None)
  Receive Date: 20140609
  Receipt Date: 20140609
  Transmission Date: 20141212
  Serious: No
  Sender: FDA-Public Use
  Company Number: 2014TUS002324

PATIENT
  Age: 59 Year
  Sex: Male
  Weight: 102 kg

DRUGS (10)
  1. BRINTELLIX [Suspect]
     Indication: MAJOR DEPRESSION
     Route: 048
     Dates: start: 20140308
  2. MAXZIDE  (HYDROCHLOROTHIAZIDE, TRIAMTERENE) [Concomitant]
  3. VASOTEC (ENALAPRIL MALEATE) [Concomitant]
  4. LIPITOR (ATORVASTATIN CALCIIUM) [Concomitant]
  5. PROTONIX (PANTOPRAZOLE SODIUM SESQUIHYDRATE) [Concomitant]
  6. AXIRON (TESTOSTERONE) [Concomitant]
  7. ASPIRIN (ACETYLSALICYLIC ACID) [Concomitant]
  8. ATIVAN (LORAZEPAM) [Concomitant]
  9. ROBAXIN (METHOCARBAMOL) [Concomitant]
  10. OXYCODONE (OXYCODONE) [Concomitant]

REACTIONS (2)
  - Nausea [None]
  - Blood testosterone decreased [None]
